FAERS Safety Report 9592439 (Version 1)
Quarter: 2013Q3

REPORT INFORMATION
  Report Type: Spontaneous
  Country: CN (occurrence: None)
  Receive Date: 20130920
  Receipt Date: 20130920
  Transmission Date: 20140515
  Serious: Yes (Death)
  Sender: FDA-Public Use
  Company Number: 2013-01439

PATIENT
  Age: 64 Year
  Sex: Male

DRUGS (2)
  1. CEFUROXIME SODIUM [Suspect]
     Indication: PRODUCT USED FOR UNKNOWN INDICATION
     Dosage: UNKNOWN (4.5 GM, UNKNOWN) UNKNOWN
  2. 5% GLUCOSE IN 250ML SALINE [Concomitant]

REACTIONS (2)
  - Alcohol intolerance [None]
  - Alcohol interaction [None]
